FAERS Safety Report 10551556 (Version 1)
Quarter: 2014Q4

REPORT INFORMATION
  Report Type: Spontaneous
  Country: US (occurrence: US)
  Receive Date: 20141029
  Receipt Date: 20141029
  Transmission Date: 20150529
  Serious: Yes (Other)
  Sender: FDA-Public Use
  Company Number: US-JNJFOC-20141014563

PATIENT
  Sex: Female
  Weight: 96.62 kg

DRUGS (1)
  1. RISPERDAL [Suspect]
     Active Substance: RISPERIDONE
     Indication: SCHIZOPHRENIA
     Route: 048
     Dates: start: 1993, end: 2012

REACTIONS (6)
  - Ocular retrobulbar haemorrhage [Recovered/Resolved]
  - Hypertension [Recovering/Resolving]
  - Oxygen saturation decreased [Unknown]
  - Memory impairment [Not Recovered/Not Resolved]
  - Dizziness [Not Recovered/Not Resolved]
  - Ocular neoplasm [Not Recovered/Not Resolved]

NARRATIVE: CASE EVENT DATE: 2012
